FAERS Safety Report 8524670-1 (Version None)
Quarter: 2012Q3

REPORT INFORMATION
  Report Type: 
  Country: None (occurrence: None)
  Receive Date: 20120720
  Receipt Date: 20120713
  Transmission Date: 20120928
  Serious: No
  Sender: FDA-Public Use
  Company Number: US-009507513-1207USA004551

PATIENT

DRUGS (3)
  1. VICTRELIS [Suspect]
     Indication: HEPATITIS C
     Dosage: 800 MG, TID
     Route: 048
     Dates: start: 20120401
  2. RIBASPHERE [Suspect]
     Dosage: 200 MG, BID
  3. PEGASYS [Suspect]
     Dosage: 180 MICROGRAM, QW
     Route: 058

REACTIONS (1)
  - ANAEMIA [None]
